FAERS Safety Report 23697767 (Version 1)
Quarter: 2024Q2

REPORT INFORMATION
  Report Type: Spontaneous
  Country: US (occurrence: None)
  Receive Date: 20240401
  Receipt Date: 20240401
  Transmission Date: 20240716
  Serious: No
  Sender: FDA-Public Use
  Company Number: None

PATIENT

DRUGS (1)
  1. FUROSEMIDE [Suspect]
     Active Substance: FUROSEMIDE
     Dosage: OTHER STRENGTH : 10 MG PER ML ;?
     Route: 048

REACTIONS (3)
  - Device use confusion [None]
  - Dose calculation error [None]
  - Overdose [None]
